FAERS Safety Report 14229584 (Version 2)
Quarter: 2018Q1

REPORT INFORMATION
  Report Type: Spontaneous
  Country: US (occurrence: US)
  Receive Date: 20171128
  Receipt Date: 20180212
  Transmission Date: 20180508
  Serious: No
  Sender: FDA-Public Use
  Company Number: US-LUNDBECK-DKLU2039938

PATIENT
  Age: 80 Year
  Sex: Female

DRUGS (2)
  1. NORTHERA [Suspect]
     Active Substance: DROXIDOPA
     Indication: PRODUCT USED FOR UNKNOWN INDICATION
     Dosage: SCHEDULE C AND TITRATING
     Route: 065
     Dates: start: 20171109
  2. NORTHERA [Suspect]
     Active Substance: DROXIDOPA
     Dosage: NO TITRATION
     Route: 065

REACTIONS (6)
  - Heart rate increased [Unknown]
  - Nausea [Unknown]
  - Dizziness [Unknown]
  - Blood pressure increased [Unknown]
  - Drug ineffective [Unknown]
  - Presyncope [Unknown]

NARRATIVE: CASE EVENT DATE: 20171109
